FAERS Safety Report 4578270-9 (Version None)
Quarter: 2005Q1

REPORT INFORMATION
  Report Type: 
  Country: None (occurrence: None)
  Receive Date: 20050201
  Receipt Date: 20050201
  Transmission Date: 20050727
  Serious: Yes (Hospitalization)
  Sender: FDA-Public Use
  Company Number: None

PATIENT
  Sex: Female
  Weight: 75.9 kg

DRUGS (2)
  1. CARBOPLATIN [Suspect]
     Indication: ENDOMETRIAL CANCER
     Dosage: AUC 2 WEEKLY IV
     Route: 042
     Dates: start: 20040921, end: 20050103
  2. TAXOL [Suspect]
     Indication: ENDOMETRIAL CANCER
     Dosage: 80 MG/1M2 WEEKLY IV
     Route: 042
     Dates: start: 20040921, end: 20050103

REACTIONS (5)
  - AMNESIA [None]
  - APHASIA [None]
  - DISORIENTATION [None]
  - DYSARTHRIA [None]
  - LETHARGY [None]
